FAERS Safety Report 10223473 (Version 1)
Quarter: 2014Q2

REPORT INFORMATION
  Report Type: Spontaneous
  Country: US (occurrence: US)
  Receive Date: 20140609
  Receipt Date: 20140609
  Transmission Date: 20141212
  Serious: No
  Sender: FDA-Public Use
  Company Number: US-BIOGENIDEC-2013BI089887

PATIENT
  Age: 65 Year
  Sex: Male
  Weight: 77 kg

DRUGS (13)
  1. TECFIDERA [Suspect]
     Indication: MULTIPLE SCLEROSIS
     Route: 048
     Dates: start: 20130828, end: 20130903
  2. TECFIDERA [Suspect]
     Indication: MULTIPLE SCLEROSIS
     Route: 048
     Dates: start: 20130904
  3. AMPYRA [Concomitant]
     Indication: GAIT DISTURBANCE
     Route: 048
     Dates: start: 20120414
  4. BACLOFEN [Concomitant]
  5. METOPROLOL [Concomitant]
  6. ASA [Concomitant]
  7. FLOMAX [Concomitant]
  8. VIAGRA [Concomitant]
  9. MARIJUANA [Concomitant]
  10. ACETAMINOPHEN [Concomitant]
  11. IBUPROFEN [Concomitant]
  12. ISOSORBIDE MONONITRATE [Concomitant]
  13. TAMSULOSIN [Concomitant]

REACTIONS (3)
  - Hot flush [Recovered/Resolved]
  - Incorrect route of drug administration [Unknown]
  - Flushing [Not Recovered/Not Resolved]
